FAERS Safety Report 5046030-0 (Version None)
Quarter: 2006Q3

REPORT INFORMATION
  Report Type: 
  Country: None (occurrence: None)
  Receive Date: 20060710
  Receipt Date: 20060707
  Transmission Date: 20061208
  Serious: Yes (Death)
  Sender: FDA-Public Use
  Company Number: JP-SANOFI-SYNTHELABO-F01200601615

PATIENT
  Age: 66 Year
  Sex: Female
  Weight: 53 kg

DRUGS (4)
  1. TIENAM [Concomitant]
     Indication: INFECTION
     Route: 041
     Dates: start: 20050322, end: 20050322
  2. CALCIUM LEVOFOLINATE [Suspect]
     Route: 042
     Dates: start: 20060320, end: 20060320
  3. FLUOROURACIL [Suspect]
     Dosage: 550MG/BODY/195MG/M2 IN BOLS FOLLOWED BY 3300 MG/BODY/2340 MG/M2 CONTINUOUS INFUSION
     Route: 042
     Dates: start: 20060320, end: 20060320
  4. OXALIPLATIN [Suspect]
     Indication: COLON CANCER
     Route: 042
     Dates: start: 20060320, end: 20060320

REACTIONS (1)
  - LEUKOPENIA [None]
